FAERS Safety Report 21124542 (Version 2)
Quarter: 2022Q3

REPORT INFORMATION
  Report Type: Spontaneous
  Country: US (occurrence: US)
  Receive Date: 20220725
  Receipt Date: 20220816
  Transmission Date: 20221026
  Serious: No
  Sender: FDA-Public Use
  Company Number: US-BRISTOL-MYERS SQUIBB COMPANY-2022-070805

PATIENT
  Age: 68 Year
  Sex: Female

DRUGS (1)
  1. POMALYST [Suspect]
     Active Substance: POMALIDOMIDE
     Indication: Plasma cell myeloma
     Dosage: FREQ: CHANGED FROM 21 DAYS ON, 7 DAYS OFF^ TO ^14 DAYS ON, 7 DAYS OFF
     Route: 048
     Dates: start: 20220623

REACTIONS (2)
  - White blood cell count decreased [Unknown]
  - Pain [Unknown]
